FAERS Safety Report 6138412-0 (Version None)
Quarter: 2009Q1

REPORT INFORMATION
  Report Type: 
  Country: None (occurrence: None)
  Receive Date: 20090331
  Receipt Date: 20090323
  Transmission Date: 20090719
  Serious: Yes (Other)
  Sender: FDA-Public Use
  Company Number: PHEH2009US03021

PATIENT
  Age: 70 Year
  Sex: Female
  Weight: 68.934 kg

DRUGS (1)
  1. VOLTAREN-XR [Suspect]
     Indication: PAIN
     Dosage: UNK
     Dates: start: 20081001, end: 20081101

REACTIONS (2)
  - ABDOMINAL DISCOMFORT [None]
  - ABNORMAL LOSS OF WEIGHT [None]
